FAERS Safety Report 12805723 (Version 7)
Quarter: 2017Q3

REPORT INFORMATION
  Report Type: Report from Study
  Country: FR (occurrence: FR)
  Receive Date: 20161004
  Receipt Date: 20170801
  Transmission Date: 20171127
  Serious: Yes (Hospitalization)
  Sender: FDA-Public Use
  Company Number: FR-B.I. PHARMACEUTICALS,INC./RIDGEFIELD-2016-BI-63232BI

PATIENT
  Age: 52 Year
  Sex: Female
  Weight: 61.4 kg

DRUGS (6)
  1. KENZEN [Concomitant]
     Active Substance: CANDESARTAN
     Indication: HYPERTENSION
     Route: 048
     Dates: start: 2000
  2. TANAKAN [Concomitant]
     Active Substance: GINKGO
     Indication: PERIPHERAL VENOUS DISEASE
     Dosage: STRENGTH: 40MG
     Route: 048
     Dates: start: 1998
  3. EMPAGLIFLOZIN [Suspect]
     Active Substance: EMPAGLIFLOZIN
     Indication: TYPE 1 DIABETES MELLITUS
     Dosage: 10 MILLIGRAMS
     Route: 048
     Dates: start: 20160715, end: 20160726
  4. HYPERIUM [Concomitant]
     Active Substance: RILMENIDINE PHOSPHATE
     Indication: HYPERTENSION
     Route: 048
     Dates: start: 2002
  5. LASILIO [Concomitant]
     Indication: HYPERTENSION
     Route: 048
     Dates: start: 1999
  6. PROZAC [Concomitant]
     Active Substance: FLUOXETINE HYDROCHLORIDE
     Indication: DEPRESSION
     Route: 048
     Dates: start: 2000

REACTIONS (3)
  - Acetonaemia [Recovered/Resolved]
  - Colitis [Recovered/Resolved]
  - Blood phosphorus decreased [Unknown]

NARRATIVE: CASE EVENT DATE: 20160926
